FAERS Safety Report 6558330-3 (Version None)
Quarter: 2010Q1

REPORT INFORMATION
  Report Type: 
  Country: None (occurrence: None)
  Receive Date: 20100129
  Receipt Date: 20100118
  Transmission Date: 20100710
  Serious: Yes (Hospitalization)
  Sender: FDA-Public Use
  Company Number: US-JNJFOC-20100108070

PATIENT
  Sex: Male

DRUGS (1)
  1. SIMPLY SLEEP NIGHTTIME [Suspect]
     Indication: DRUG USE FOR UNKNOWN INDICATION
     Route: 048

REACTIONS (3)
  - FUNGAL INFECTION [None]
  - INFLUENZA LIKE ILLNESS [None]
  - PRODUCT QUALITY ISSUE [None]
